FAERS Safety Report 8842403 (Version 2)
Quarter: 2014Q4

REPORT INFORMATION
  Report Type: Report from Study
  Country: AU (occurrence: AU)
  Receive Date: 20121016
  Receipt Date: 20141219
  Transmission Date: 20150529
  Serious: Yes (Disabling)
  Sender: FDA-Public Use
  Company Number: AU-ROCHE-1145773

PATIENT
  Sex: Female

DRUGS (1)
  1. ACTEMRA [Suspect]
     Active Substance: TOCILIZUMAB
     Indication: RHEUMATOID ARTHRITIS
     Dosage: LAST DOSE OF DRUG ADMINISTERED ON 19/SEP/2012.
     Route: 042
     Dates: start: 20120919

REACTIONS (1)
  - Deafness unilateral [Recovering/Resolving]
